FAERS Safety Report 10218344 (Version 1)
Quarter: 2014Q2

REPORT INFORMATION
  Report Type: Spontaneous
  Country: US (occurrence: US)
  Receive Date: 20140605
  Receipt Date: 20140605
  Transmission Date: 20141212
  Serious: No
  Sender: FDA-Public Use
  Company Number: US-B.I. PHARMACEUTICALS,INC./RIDGEFIELD-2014-BI-23248BP

PATIENT
  Sex: Female
  Weight: 61 kg

DRUGS (3)
  1. COMBIVENT [Suspect]
     Indication: EMPHYSEMA
     Dosage: STRENGTH: 18 MCG / 103 MCG;
     Route: 055
     Dates: start: 2008, end: 201311
  2. ADVAIR [Concomitant]
     Indication: EMPHYSEMA
     Route: 055
  3. VALIUM [Concomitant]
     Indication: ANXIETY
     Dosage: 30 MG
     Route: 048

REACTIONS (2)
  - Thrombosis [Not Recovered/Not Resolved]
  - Halo vision [Not Recovered/Not Resolved]
